FAERS Safety Report 18987955 (Version 2)
Quarter: 2021Q1

REPORT INFORMATION
  Report Type: Spontaneous
  Country: JP (occurrence: JP)
  Receive Date: 20210309
  Receipt Date: 20210326
  Transmission Date: 20210420
  Serious: Yes (Hospitalization, Other)
  Sender: FDA-Public Use
  Company Number: JP-ASTRAZENECA-2021A107415

PATIENT
  Age: 61 Year
  Sex: Male

DRUGS (6)
  1. SYMBICORT [Suspect]
     Active Substance: BUDESONIDE\FORMOTEROL FUMARATE DIHYDRATE
     Indication: ASTHMA
     Dosage: 3 DF TWO TIMES A DAY
     Route: 055
     Dates: start: 202003, end: 202004
  2. PRANLUKAST [Concomitant]
     Active Substance: PRANLUKAST
     Indication: ASTHMA
     Dosage: DOSE UNKNOWN
     Route: 065
     Dates: start: 201804
  3. SYMBICORT [Suspect]
     Active Substance: BUDESONIDE\FORMOTEROL FUMARATE DIHYDRATE
     Indication: ASTHMA
     Dosage: 2 DF TWO TIMES A DAY
     Route: 055
     Dates: start: 202004, end: 202010
  4. SYMBICORT [Suspect]
     Active Substance: BUDESONIDE\FORMOTEROL FUMARATE DIHYDRATE
     Indication: ASTHMA
     Dosage: 2 DF TWO TIMES A DAY
     Route: 055
     Dates: start: 201810, end: 202003
  5. MONTELUKAST [Concomitant]
     Active Substance: MONTELUKAST SODIUM
     Indication: ASTHMA
     Dosage: DOSE UNKNOWN
     Route: 048
     Dates: start: 201810
  6. TIOTROPIUM BROMIDE HYDRATE [Concomitant]
     Indication: ASTHMA
     Dosage: DOSE UNKNOWN
     Route: 055
     Dates: start: 201810

REACTIONS (11)
  - Infection [Recovering/Resolving]
  - Asthma [Recovering/Resolving]
  - Inflammation [Recovering/Resolving]
  - Palpitations [Recovering/Resolving]
  - Drug ineffective [Unknown]
  - Wheezing [Recovering/Resolving]
  - Cough [Recovering/Resolving]
  - HLA marker study positive [Recovering/Resolving]
  - Pulmonary imaging procedure abnormal [Recovering/Resolving]
  - Pneumonia [Recovering/Resolving]
  - Dyspnoea [Recovering/Resolving]

NARRATIVE: CASE EVENT DATE: 201810
